FAERS Safety Report 24371977 (Version 1)
Quarter: 2024Q3

REPORT INFORMATION
  Report Type: Spontaneous
  Country: US (occurrence: None)
  Receive Date: 20240926
  Receipt Date: 20240926
  Transmission Date: 20241016
  Serious: No
  Sender: Public
  Company Number: None

PATIENT
  Age: 78 Year
  Sex: Female
  Weight: 73.8 kg

DRUGS (10)
  1. COPAXONE [Suspect]
     Active Substance: GLATIRAMER ACETATE
     Indication: Multiple sclerosis
     Dosage: 3 TIMESS/WEEK SUBCUTANEOUS
     Route: 058
  2. GEMTESA [Concomitant]
     Active Substance: VIBEGRON
  3. Cosamin DS (1500mg Glucosamine 1200mg Chondroitin) [Concomitant]
  4. One-A-Day Women^s 50+ (Ca 300mg D31000 IU) [Concomitant]
  5. Citracal Petites (Ca 200mg D3 250 IU) [Concomitant]
  6. VITAMIN D3 [Concomitant]
     Active Substance: CHOLECALCIFEROL
  7. B 12 [Concomitant]
  8. MAGNESIUM [Concomitant]
     Active Substance: MAGNESIUM
  9. HERBALS\TURMERIC [Concomitant]
     Active Substance: HERBALS\TURMERIC
  10. TURMERIC AND GINGER (VIMERSON HEALTH) [Concomitant]

REACTIONS (10)
  - Dysgeusia [None]
  - Flushing [None]
  - Heart rate increased [None]
  - Chest discomfort [None]
  - Tension headache [None]
  - Rash erythematous [None]
  - Swelling [None]
  - Swelling face [None]
  - Chills [None]
  - Hyperhidrosis [None]

NARRATIVE: CASE EVENT DATE: 20240828
